FAERS Safety Report 22055409 (Version 2)
Quarter: 2024Q1

REPORT INFORMATION
  Report Type: Spontaneous
  Country: US (occurrence: US)
  Receive Date: 20230302
  Receipt Date: 20240131
  Transmission Date: 20240409
  Serious: No
  Sender: FDA-Public Use
  Company Number: US-BRISTOL-MYERS SQUIBB COMPANY-2023-029353

PATIENT
  Age: 87 Year
  Sex: Female

DRUGS (1)
  1. LENALIDOMIDE [Suspect]
     Active Substance: LENALIDOMIDE
     Indication: Nephrogenic anaemia
     Dosage: FREQUENCY : TAKE 1 CAPSULE BY MOUTH ON DAYS 1-21 OF A 28 DAY CYCLE
     Route: 048
     Dates: start: 20221207

REACTIONS (2)
  - Off label use [Unknown]
  - Product dose omission issue [Unknown]
